FAERS Safety Report 20035356 (Version 2)
Quarter: 2021Q4

REPORT INFORMATION
  Report Type: Spontaneous
  Country: NL (occurrence: NL)
  Receive Date: 20211104
  Receipt Date: 20211117
  Transmission Date: 20220304
  Serious: Yes (Other)
  Sender: FDA-Public Use
  Company Number: NL-TEVA-2021-NL-1972445

PATIENT
  Age: 63 Year
  Sex: Female

DRUGS (4)
  1. RESLIZUMAB [Suspect]
     Active Substance: RESLIZUMAB
     Indication: Asthma
     Route: 065
  2. MEPOLIZUMAB [Suspect]
     Active Substance: MEPOLIZUMAB
     Indication: Asthma
     Route: 065
  3. BENRALIZUMAB [Suspect]
     Active Substance: BENRALIZUMAB
     Indication: Asthma
     Route: 065
  4. PREDNISONE [Concomitant]
     Active Substance: PREDNISONE
     Indication: Asthma
     Route: 048

REACTIONS (2)
  - Eosinopenia [Recovered/Resolved]
  - Drug ineffective [Unknown]
